FAERS Safety Report 10427573 (Version 1)
Quarter: 2014Q3

REPORT INFORMATION
  Report Type: Spontaneous
  Country: FR (occurrence: FR)
  Receive Date: 20140903
  Receipt Date: 20140903
  Transmission Date: 20150326
  Serious: Yes (Hospitalization)
  Sender: FDA-Public Use
  Company Number: FR-PFIZER INC-2014242169

PATIENT
  Age: 53 Year
  Sex: Female

DRUGS (11)
  1. EUPANTOL [Suspect]
     Active Substance: PANTOPRAZOLE SODIUM
     Dosage: 40 MG, 1X/DAY
     Route: 042
     Dates: start: 20140709, end: 20140721
  2. VANCOMYCINE SANDOZ [Suspect]
     Active Substance: VANCOMYCIN
     Dosage: 2 G, 1X/DAY
     Route: 042
     Dates: start: 20140704, end: 20140716
  3. CANCIDAS [Suspect]
     Active Substance: CASPOFUNGIN ACETATE
     Indication: PROPHYLAXIS
     Dosage: 50 MG, 1X/DAY
     Route: 042
     Dates: start: 20140702, end: 20140720
  4. PRIMPERAN [Suspect]
     Active Substance: METOCLOPRAMIDE HYDROCHLORIDE
     Dosage: 30 MG, 1X/DAY
     Route: 042
     Dates: start: 20140704, end: 20140717
  5. LOXEN [Concomitant]
     Active Substance: NICARDIPINE HYDROCHLORIDE
     Dosage: UNK
     Dates: start: 20140708, end: 20140720
  6. SPASFON [Suspect]
     Active Substance: PHLOROGLUCINOL
     Dosage: UNK
     Route: 042
     Dates: start: 20140705, end: 20140718
  7. MORPHINE SULFATE. [Suspect]
     Active Substance: MORPHINE SULFATE
     Dosage: 24 MG, 1X/DAY
     Route: 042
     Dates: start: 20140704, end: 20140711
  8. FUROSEMIDE RENAUDIN [Suspect]
     Active Substance: FUROSEMIDE
     Dosage: 20 MG, 1X/DAY
     Route: 042
     Dates: start: 20140704, end: 20140716
  9. CEFTAZIDIME. [Suspect]
     Active Substance: CEFTAZIDIME
     Dosage: 6 G, 1X/DAY
     Route: 042
     Dates: start: 20140702, end: 20140720
  10. FLAGYL [Suspect]
     Active Substance: METRONIDAZOLE\METRONIDAZOLE HYDROCHLORIDE
     Dosage: 1500 MG, 1X/DAY
     Route: 048
     Dates: start: 20140716, end: 20140717
  11. INSULINE /01223401/ [Concomitant]
     Active Substance: INSULIN NOS
     Dosage: UNK
     Dates: start: 20140708, end: 20140720

REACTIONS (1)
  - Toxic skin eruption [Recovered/Resolved]

NARRATIVE: CASE EVENT DATE: 20140717
